FAERS Safety Report 7694381-3 (Version None)
Quarter: 2011Q3

REPORT INFORMATION
  Report Type: 
  Country: None (occurrence: None)
  Receive Date: 20110819
  Receipt Date: 20110808
  Transmission Date: 20111222
  Serious: Yes (Life-Threatening, Hospitalization)
  Sender: FDA-Public Use
  Company Number: CM-MERCK-1108USA01087

PATIENT
  Age: 24 Year
  Sex: Male

DRUGS (5)
  1. STROMECTOL [Suspect]
     Route: 048
     Dates: start: 20070101
  2. STROMECTOL [Suspect]
     Indication: ONCHOCERCIASIS
     Route: 048
     Dates: start: 20110723, end: 20110723
  3. STROMECTOL [Suspect]
     Indication: FILARIASIS LYMPHATIC
     Route: 048
     Dates: start: 20110723, end: 20110723
  4. STROMECTOL [Suspect]
     Route: 048
     Dates: start: 20070101
  5. ALBENDAZOLE [Suspect]
     Route: 065
     Dates: start: 20110723, end: 20110723

REACTIONS (7)
  - DRUG INTERACTION [None]
  - RASH [None]
  - DEPRESSED LEVEL OF CONSCIOUSNESS [None]
  - GASTROENTERITIS [None]
  - ADVERSE REACTION [None]
  - ENCEPHALOPATHY [None]
  - CONJUNCTIVAL HAEMORRHAGE [None]
